FAERS Safety Report 6662663-X (Version None)
Quarter: 2010Q2

REPORT INFORMATION
  Report Type: 
  Country: None (occurrence: None)
  Receive Date: 20100401
  Receipt Date: 20100322
  Transmission Date: 20101027
  Serious: Yes (Hospitalization)
  Sender: FDA-Public Use
  Company Number: BR-BIOGENIDEC-2010BI009408

PATIENT
  Age: 49 Year
  Sex: Male

DRUGS (1)
  1. AVONEX [Suspect]
     Indication: MULTIPLE SCLEROSIS
     Route: 030
     Dates: start: 20030101

REACTIONS (6)
  - ARRHYTHMIA [None]
  - CHILLS [None]
  - IRRITABILITY [None]
  - SENSORY LOSS [None]
  - TACHYCARDIA [None]
  - VENTRICULAR ARRHYTHMIA [None]
